FAERS Safety Report 14484476 (Version 2)
Quarter: 2019Q1

REPORT INFORMATION
  Report Type: Report from Study
  Country: RO (occurrence: RO)
  Receive Date: 20180205
  Receipt Date: 20190327
  Transmission Date: 20190417
  Serious: Yes (Other)
  Sender: FDA-Public Use
  Company Number: RO-ROCHE-1963912

PATIENT
  Sex: Female
  Weight: 63 kg

DRUGS (9)
  1. SELENIUM [Concomitant]
     Active Substance: SELENIUM
  2. DEBRIDAT [Concomitant]
     Active Substance: TRIMEBUTINE MALEATE
  3. ARTHROTEC [Concomitant]
     Active Substance: DICLOFENAC SODIUM\MISOPROSTOL
  4. TERTENSIF [Concomitant]
     Active Substance: INDAPAMIDE
  5. METOPROLOL. [Concomitant]
     Active Substance: METOPROLOL
  6. DETRALEX [Concomitant]
     Active Substance: DIOSMIN\HESPERIDIN
  7. ASPENTER [Concomitant]
     Active Substance: ASPIRIN
  8. MABTHERA [Suspect]
     Active Substance: RITUXIMAB
     Indication: RHEUMATOID ARTHRITIS
     Route: 042
     Dates: start: 200904
  9. OMEZ [Concomitant]
     Active Substance: OMEPRAZOLE

REACTIONS (9)
  - Gastric ulcer [Not Recovered/Not Resolved]
  - Headache [Not Recovered/Not Resolved]
  - Calcium deficiency [Not Recovered/Not Resolved]
  - Pneumonia [Recovered/Resolved]
  - Renal pain [Not Recovered/Not Resolved]
  - Spinal pain [Not Recovered/Not Resolved]
  - Interstitial lung disease [Not Recovered/Not Resolved]
  - Pain in extremity [Not Recovered/Not Resolved]
  - Road traffic accident [Unknown]
